FAERS Safety Report 16346083 (Version 1)
Quarter: 2019Q2

REPORT INFORMATION
  Report Type: Spontaneous
  Country: CA (occurrence: CA)
  Receive Date: 20190523
  Receipt Date: 20190523
  Transmission Date: 20190711
  Serious: Yes (Other)
  Sender: FDA-Public Use
  Company Number: CA-TEVA-2019-CA-1052030

PATIENT
  Age: 62 Year
  Sex: Female
  Weight: 54.48 kg

DRUGS (9)
  1. VALTREX [Concomitant]
     Active Substance: VALACYCLOVIR HYDROCHLORIDE
  2. SYNTHROID [Concomitant]
     Active Substance: LEVOTHYROXINE SODIUM
  3. EMO CORT LOTION 1% [Concomitant]
     Dosage: FORM OF ADMIN : LOTION
  4. VIGAMOX [Concomitant]
     Active Substance: MOXIFLOXACIN HYDROCHLORIDE
     Dosage: FORM OF ADMIN : SOLUTION OPHTHALMIC
  5. TEVA-EZETIMIBE [Suspect]
     Active Substance: EZETIMIBE
     Indication: BLOOD CHOLESTEROL DECREASED
     Dosage: 10 MILLIGRAM DAILY;
     Route: 048
  6. EZETROL [Concomitant]
     Active Substance: EZETIMIBE
  7. DIOVAN [Concomitant]
     Active Substance: VALSARTAN
  8. SIMVASTATIN. [Concomitant]
     Active Substance: SIMVASTATIN
  9. TEARS NATURALE FREE [Concomitant]
     Active Substance: DEXTRAN 70\HYPROMELLOSE 2910 (4000 MPA.S)
     Dosage: FORM OF ADMIN : OPHTHALMIC

REACTIONS (3)
  - Low density lipoprotein increased [Recovered/Resolved]
  - Sinusitis [Recovered/Resolved]
  - Back pain [Recovered/Resolved]
